FAERS Safety Report 7987163-6 (Version None)
Quarter: 2011Q4

REPORT INFORMATION
  Report Type: 
  Country: None (occurrence: None)
  Receive Date: 20111216
  Receipt Date: 20111003
  Transmission Date: 20120403
  Serious: No
  Sender: FDA-Public Use
  Company Number: US-BRISTOL-MYERS SQUIBB COMPANY-16126526

PATIENT
  Sex: Female

DRUGS (1)
  1. ABILIFY [Suspect]
     Dosage: INTERUPTED AND RESTAT WITH 7,5MG ONCE EVERY 5 DAYS

REACTIONS (2)
  - TRISMUS [None]
  - DEPRESSION [None]
